FAERS Safety Report 23733038 (Version 1)
Quarter: 2024Q2

REPORT INFORMATION
  Report Type: Spontaneous
  Country: US (occurrence: US)
  Receive Date: 20240411
  Receipt Date: 20240411
  Transmission Date: 20240716
  Serious: No
  Sender: FDA-Public Use
  Company Number: US-PFIZER INC-PV202400046270

PATIENT
  Age: 86 Year
  Sex: Male
  Weight: 56.2 kg

DRUGS (1)
  1. VYNDAMAX [Suspect]
     Active Substance: TAFAMIDIS
     Indication: Acquired ATTR amyloidosis
     Dosage: ONE 61 MG TAFAMIDIS CAPSULE ORALLY ONCE DAILY
     Route: 048

REACTIONS (17)
  - Total cholesterol/HDL ratio decreased [Unknown]
  - Glycosylated haemoglobin increased [Unknown]
  - Blood thyroid stimulating hormone increased [Unknown]
  - N-terminal prohormone brain natriuretic peptide increased [Unknown]
  - Haematocrit decreased [Unknown]
  - Blood glucose increased [Unknown]
  - Blood urea increased [Unknown]
  - Blood pH decreased [Unknown]
  - Blood creatinine increased [Unknown]
  - Haemoglobin decreased [Unknown]
  - PO2 increased [Unknown]
  - Oxygen saturation increased [Unknown]
  - Protein total decreased [Unknown]
  - Troponin I increased [Unknown]
  - International normalised ratio decreased [Unknown]
  - Gait disturbance [Unknown]
  - Glomerular filtration rate decreased [Unknown]
